FAERS Safety Report 9056878 (Version 1)
Quarter: 2013Q1

REPORT INFORMATION
  Report Type: Report from Study
  Country: US (occurrence: US)
  Receive Date: 20130201
  Receipt Date: 20130201
  Transmission Date: 20140127
  Serious: Yes (Hospitalization)
  Sender: FDA-Public Use
  Company Number: US-VIIV HEALTHCARE LIMITED-B0861208A

PATIENT
  Age: 16 Year
  Sex: Female
  Weight: 43.9 kg

DRUGS (4)
  1. MARAVIROC [Suspect]
     Indication: HIV INFECTION
     Dosage: 300MG TWICE PER DAY
     Route: 048
     Dates: start: 20121206, end: 20130103
  2. RALTEGRAVIR [Suspect]
     Route: 048
     Dates: start: 20121206, end: 20130103
  3. ETRAVIRINE [Suspect]
     Route: 048
     Dates: start: 20121206, end: 20130103
  4. TENOFOVIR [Suspect]
     Route: 048
     Dates: start: 20121206, end: 20130103

REACTIONS (1)
  - Abdominal pain [Unknown]
